FAERS Safety Report 10251928 (Version 1)
Quarter: 2014Q2

REPORT INFORMATION
  Report Type: Spontaneous
  Country: US (occurrence: US)
  Receive Date: 20140623
  Receipt Date: 20140623
  Transmission Date: 20141212
  Serious: No
  Sender: FDA-Public Use
  Company Number: US-AMGEN-USASP2014046213

PATIENT
  Age: 28 Year
  Sex: Female

DRUGS (1)
  1. ENBREL [Suspect]
     Indication: PSORIASIS
     Dosage: 50 MILLIGRAMS EVERY 4 DAYS
     Route: 065
     Dates: start: 20140528

REACTIONS (2)
  - Injection site reaction [Recovered/Resolved]
  - Injection site bruising [Recovered/Resolved]
